FAERS Safety Report 8131653-2 (Version None)
Quarter: 2012Q1

REPORT INFORMATION
  Report Type: 
  Country: None (occurrence: None)
  Receive Date: 20120103
  Receipt Date: 20110827
  Transmission Date: 20120608
  Serious: No
  Sender: FDA-Public Use
  Company Number: AE-2011-001178

PATIENT
  Age: 55 Year
  Sex: Male
  Weight: 79.3795 kg

DRUGS (6)
  1. PEGINTERFERON (PEGINTERFERON ALFA-2A) [Concomitant]
  2. INCIVEK [Suspect]
     Dosage: (3 IN 1 D)
     Dates: start: 20110728
  3. RIBAVIRIN [Concomitant]
  4. DIOVAN [Concomitant]
  5. AMBIEN [Concomitant]
  6. EFFEXOR [Concomitant]

REACTIONS (2)
  - GINGIVAL PAIN [None]
  - JAW DISORDER [None]
